FAERS Safety Report 4688850-8 (Version None)
Quarter: 2005Q2

REPORT INFORMATION
  Report Type: 
  Country: None (occurrence: None)
  Receive Date: 20050613
  Receipt Date: 20050609
  Transmission Date: 20051028
  Serious: Yes (Hospitalization)
  Sender: FDA-Public Use
  Company Number: FR-GLAXOSMITHKLINE-B0383868A

PATIENT
  Age: 79 Year
  Sex: Male

DRUGS (7)
  1. CLAMOXYL [Suspect]
     Indication: BRONCHIAL OBSTRUCTION
     Dosage: 3G PER DAY
     Route: 042
     Dates: start: 20050527, end: 20050601
  2. FURADANTIN [Suspect]
     Indication: LEUKOCYTOSIS
     Dosage: 6CAP PER DAY
     Route: 048
     Dates: start: 20050531, end: 20050601
  3. PLAVIX [Concomitant]
     Route: 065
  4. DIGOXIN [Concomitant]
     Route: 065
  5. FONZYLANE [Concomitant]
     Route: 065
  6. ADANCOR [Concomitant]
     Route: 048
  7. CETORNAN [Concomitant]
     Route: 065

REACTIONS (4)
  - CONJUNCTIVITIS [None]
  - PRURITUS [None]
  - RASH MACULO-PAPULAR [None]
  - SKIN BURNING SENSATION [None]
